FAERS Safety Report 16325731 (Version 1)
Quarter: 2019Q2

REPORT INFORMATION
  Report Type: Spontaneous
  Country: US (occurrence: US)
  Receive Date: 20190516
  Receipt Date: 20190516
  Transmission Date: 20190711
  Serious: Yes (Hospitalization)
  Sender: FDA-Public Use
  Company Number: None

PATIENT
  Age: 64 Year
  Sex: Male
  Weight: 84 kg

DRUGS (5)
  1. ATORVASTATIN 10 MG DAILY [Concomitant]
  2. ASPIRIN 81 MG EC DAILY [Concomitant]
  3. HEPARIN SODIUM. [Suspect]
     Active Substance: HEPARIN SODIUM
     Indication: PERIPHERAL VASCULAR DISORDER
     Dosage: ?          OTHER FREQUENCY:CONTINUOUS;?
     Route: 041
     Dates: start: 20190206, end: 20190507
  4. CLOPIDOGREL 75 MG DAILY [Concomitant]
  5. MULTIVITAMIN DAILY [Concomitant]

REACTIONS (5)
  - Dyspepsia [None]
  - Bleeding varicose vein [None]
  - Peptic ulcer [None]
  - Haematemesis [None]
  - Gastrointestinal haemorrhage [None]

NARRATIVE: CASE EVENT DATE: 20190207
